FAERS Safety Report 11702894 (Version 2)
Quarter: 2015Q4

REPORT INFORMATION
  Report Type: Spontaneous
  Country: IE (occurrence: IE)
  Receive Date: 20151105
  Receipt Date: 20151204
  Transmission Date: 20160304
  Serious: Yes (Death, Other)
  Sender: FDA-Public Use
  Company Number: IE-ELI_LILLY_AND_COMPANY-IE201510008626

PATIENT

DRUGS (10)
  1. ZYPREXA [Suspect]
     Active Substance: OLANZAPINE
     Indication: BORDERLINE PERSONALITY DISORDER
     Dosage: 10 MG, QD
     Route: 064
  2. FLUOXETINE [Concomitant]
     Active Substance: FLUOXETINE HYDROCHLORIDE
     Indication: PRODUCT USED FOR UNKNOWN INDICATION
     Dosage: 20 MG, UNKNOWN
     Route: 064
  3. ZYPREXA [Suspect]
     Active Substance: OLANZAPINE
     Indication: BORDERLINE PERSONALITY DISORDER
     Dosage: 10 MG, QD
     Route: 064
  4. PREGABALIN. [Concomitant]
     Active Substance: PREGABALIN
     Indication: ANTIDEPRESSANT THERAPY
     Dosage: UNK, UNKNOWN
     Route: 064
  5. FLUOXETINE [Concomitant]
     Active Substance: FLUOXETINE HYDROCHLORIDE
     Indication: PRODUCT USED FOR UNKNOWN INDICATION
     Dosage: 20 MG, UNKNOWN
     Route: 064
  6. ESCITALOPRAM [Concomitant]
     Active Substance: ESCITALOPRAM OXALATE
     Indication: ANTIDEPRESSANT THERAPY
     Dosage: UNK, UNKNOWN
     Route: 064
  7. ESCITALOPRAM [Concomitant]
     Active Substance: ESCITALOPRAM OXALATE
     Indication: ANTIDEPRESSANT THERAPY
     Dosage: UNK, UNKNOWN
     Route: 064
  8. ZYPREXA [Suspect]
     Active Substance: OLANZAPINE
     Indication: PSYCHOTIC DISORDER
     Dosage: 2.5 MG, QD
     Route: 064
     Dates: end: 20150311
  9. PREGABALIN. [Concomitant]
     Active Substance: PREGABALIN
     Indication: ANTIDEPRESSANT THERAPY
     Dosage: UNK, UNKNOWN
     Route: 064
  10. ZYPREXA [Suspect]
     Active Substance: OLANZAPINE
     Indication: PSYCHOTIC DISORDER
     Dosage: 2.5 MG, QD
     Route: 064
     Dates: end: 20150311

REACTIONS (3)
  - Foetal exposure during pregnancy [Unknown]
  - Premature baby [Unknown]
  - Placental transfusion syndrome [Fatal]
